FAERS Safety Report 17165284 (Version 12)
Quarter: 2023Q1

REPORT INFORMATION
  Report Type: Spontaneous
  Country: PT (occurrence: PT)
  Receive Date: 20191217
  Receipt Date: 20230303
  Transmission Date: 20230418
  Serious: Yes (Life-Threatening, Hospitalization, Other)
  Sender: FDA-Public Use
  Company Number: PT-MYLANLABS-2019M1124239

PATIENT
  Age: 20 Year
  Sex: Male

DRUGS (9)
  1. IBUPROFEN [Suspect]
     Active Substance: IBUPROFEN
     Indication: Asthma
     Dosage: UNK
     Route: 048
  2. FORMOTEROL [Suspect]
     Active Substance: FORMOTEROL
     Indication: Asthma
     Dosage: 4.5 MICROGRAM (4.5 UG, SOS)
     Route: 065
  3. BUDESONIDE [Suspect]
     Active Substance: BUDESONIDE
     Indication: Asthma
     Dosage: 160 MICROGRAM (160 UG, SOS)
     Route: 065
  4. BUDESONIDE [Suspect]
     Active Substance: BUDESONIDE
     Indication: Chronic rhinosinusitis with nasal polyps
     Dosage: 100 MICROGRAM, BID (0.5 DAY)
     Route: 045
  5. ASPIRIN [Suspect]
     Active Substance: ASPIRIN
     Indication: Product used for unknown indication
     Dosage: UNK
     Route: 065
  6. BUDESONIDE\FORMOTEROL [Suspect]
     Active Substance: BUDESONIDE\FORMOTEROL
     Indication: Asthma
     Dosage: 160 MICROGRAM (BUDESONIDE/FORMOTEROL: 160/4.5 UG/DOSE TWICE DAILY )
     Route: 055
  7. BUDESONIDE\FORMOTEROL [Suspect]
     Active Substance: BUDESONIDE\FORMOTEROL
     Indication: Chronic rhinosinusitis with nasal polyps
  8. EPINEPHRINE BITARTRATE [Suspect]
     Active Substance: EPINEPHRINE BITARTRATE
     Indication: Anaphylactic reaction
     Dosage: UNK
     Route: 030
  9. MONTELUKAST [Suspect]
     Active Substance: MONTELUKAST SODIUM
     Indication: Chronic rhinosinusitis with nasal polyps
     Dosage: 10 MILLIGRAM, QD (AS NEEDED )
     Route: 065

REACTIONS (27)
  - Atrial fibrillation [Recovering/Resolving]
  - Anaphylactic reaction [Unknown]
  - Oxygen saturation decreased [Recovered/Resolved]
  - Hypersensitivity [Recovered/Resolved]
  - Lip oedema [Unknown]
  - Periorbital oedema [Unknown]
  - Diarrhoea [Unknown]
  - Dyspnoea [Unknown]
  - Oedema peripheral [Unknown]
  - Drug intolerance [Unknown]
  - Erythema [Unknown]
  - Cough [Unknown]
  - Nasal obstruction [Recovering/Resolving]
  - Nasal polyps [Unknown]
  - Nasal turbinate hypertrophy [Unknown]
  - Taste disorder [Not Recovered/Not Resolved]
  - Asthma [Unknown]
  - Anosmia [Not Recovered/Not Resolved]
  - Condition aggravated [Unknown]
  - Bronchial disorder [Recovering/Resolving]
  - Sinusitis [Unknown]
  - NSAID exacerbated respiratory disease [Unknown]
  - Pruritus [Unknown]
  - Drug hypersensitivity [Recovered/Resolved]
  - Eosinophilia [Unknown]
  - Off label use [Unknown]
  - Drug ineffective [Unknown]
